FAERS Safety Report 25032641 (Version 1)
Quarter: 2025Q1

REPORT INFORMATION
  Report Type: Report from Study
  Country: US (occurrence: US)
  Receive Date: 20250303
  Receipt Date: 20250303
  Transmission Date: 20250409
  Serious: Yes (Other)
  Sender: IOVANCE BIOTHERAPEUTICS MANUFACTURING LLC
  Company Number: US-IOVANCE BIOTHERAPEUTICS INC.-IOV2025000019

PATIENT

DRUGS (4)
  1. ALDESLEUKIN [Suspect]
     Active Substance: ALDESLEUKIN
     Indication: Product used for unknown indication
     Route: 065
     Dates: start: 20250208, end: 20250208
  2. CYCLOPHOSPHAMIDE [Suspect]
     Active Substance: CYCLOPHOSPHAMIDE
     Indication: Product used for unknown indication
     Route: 042
     Dates: start: 20250202, end: 20250203
  3. FLUDARABINE [Suspect]
     Active Substance: FLUDARABINE PHOSPHATE
     Indication: Product used for unknown indication
     Route: 042
     Dates: start: 20250202, end: 20250206
  4. AMTAGVI [Suspect]
     Active Substance: LIFILEUCEL
     Indication: Product used for unknown indication
     Route: 065
     Dates: start: 20250207, end: 20250207

REACTIONS (1)
  - Blood creatinine increased [Not Recovered/Not Resolved]

NARRATIVE: CASE EVENT DATE: 20250215
